FAERS Safety Report 7381722 (Version 2)
Quarter: 2013Q3

REPORT INFORMATION
  Report Type: Spontaneous
  Country: US (occurrence: US)
  Receive Date: 20100510
  Receipt Date: 20130805
  Transmission Date: 20140515
  Serious: Yes (Disabling, Other)
  Sender: FDA-Public Use
  Company Number: US-TEVA-233560USA

PATIENT
  Age: 69 Year
  Sex: Female

DRUGS (1)
  1. ETHAMBUTOL HYDROCHLORIDE TABLET 400MG [Suspect]
     Indication: MYCOBACTERIUM AVIUM COMPLEX INFECTION
     Dates: end: 2009

REACTIONS (1)
  - Peroneal muscular atrophy [Not Recovered/Not Resolved]
